FAERS Safety Report 25909766 (Version 1)
Quarter: 2025Q4

REPORT INFORMATION
  Report Type: Spontaneous
  Country: US (occurrence: US)
  Receive Date: 20251012
  Receipt Date: 20251012
  Transmission Date: 20260118
  Serious: No
  Sender: SANOFI AVENTIS
  Company Number: US-SA-2025SA301698

PATIENT
  Age: 66 Year
  Sex: Female

DRUGS (2)
  1. DUPIXENT [Suspect]
     Active Substance: DUPILUMAB
     Dosage: UNK
  2. NEMLUVIO [Suspect]
     Active Substance: NEMOLIZUMAB-ILTO

REACTIONS (2)
  - Rash erythematous [Unknown]
  - Eye irritation [Unknown]
